FAERS Safety Report 6433261-8 (Version None)
Quarter: 2009Q4

REPORT INFORMATION
  Report Type: 
  Country: None (occurrence: None)
  Receive Date: 20091109
  Receipt Date: 20091027
  Transmission Date: 20100525
  Serious: Yes (Hospitalization)
  Sender: FDA-Public Use
  Company Number: FR-PFIZER INC-2009189803

PATIENT
  Age: 38 Year
  Sex: Female
  Weight: 80 kg

DRUGS (8)
  1. CHAMPIX [Suspect]
     Dosage: UNK
     Route: 048
     Dates: start: 20090223, end: 20090228
  2. FENOFIBRATE [Suspect]
     Dosage: 100 MG, 1X/DAY
     Route: 048
     Dates: start: 20090201, end: 20090101
  3. ZONEGRAN [Concomitant]
     Dosage: 75 MG, 2X/DAY
     Route: 048
     Dates: start: 20090213
  4. LANSOPRAZOLE [Concomitant]
     Dosage: 30 MG, 1X/DAY
     Route: 048
     Dates: start: 20081201
  5. DAFALGAN [Concomitant]
     Dosage: UNK
     Route: 048
  6. KEPPRA [Concomitant]
     Dosage: 1 G, 2X/DAY
  7. DEROXAT [Concomitant]
     Dosage: 20 MG, UNK
  8. ATARAX [Concomitant]
     Dosage: 100 MG, UNK

REACTIONS (4)
  - HEADACHE [None]
  - HYPOAESTHESIA [None]
  - MYALGIA [None]
  - RADICULAR PAIN [None]
